FAERS Safety Report 17867649 (Version 2)
Quarter: 2021Q1

REPORT INFORMATION
  Report Type: Spontaneous
  Country: RO (occurrence: RO)
  Receive Date: 20200605
  Receipt Date: 20210122
  Transmission Date: 20210419
  Serious: Yes (Other)
  Sender: FDA-Public Use
  Company Number: RO-UCBSA-2020022047

PATIENT
  Age: 73 Year
  Sex: Female

DRUGS (7)
  1. XYZAL [Suspect]
     Active Substance: LEVOCETIRIZINE DIHYDROCHLORIDE
     Indication: FOOD ALLERGY
     Dosage: 5 MILLIGRAM, ONCE DAILY (QD)
  2. RINOCORT [Concomitant]
     Indication: PRODUCT USED FOR UNKNOWN INDICATION
     Dosage: UNK
  3. ASTHA [CHLORPHENAMINE MALEATE;LIDOCAINE HYDROCHLORIDE;MENTHOL;MESULFEN [Concomitant]
     Indication: PRODUCT USED FOR UNKNOWN INDICATION
  4. AERIUS (DESLORATADINE) [Concomitant]
     Active Substance: DESLORATADINE
     Indication: PRODUCT USED FOR UNKNOWN INDICATION
     Dosage: UNK
  5. DYMISTA [Concomitant]
     Active Substance: AZELASTINE HYDROCHLORIDE\FLUTICASONE PROPIONATE
     Indication: PRODUCT USED FOR UNKNOWN INDICATION
  6. NASONEX [Concomitant]
     Active Substance: MOMETASONE FUROATE
     Indication: PRODUCT USED FOR UNKNOWN INDICATION
     Dosage: UNK
  7. CLARITINE [Concomitant]
     Active Substance: LORATADINE
     Indication: PRODUCT USED FOR UNKNOWN INDICATION

REACTIONS (9)
  - Hypersensitivity [Unknown]
  - Product use in unapproved indication [Unknown]
  - Paralysis [Unknown]
  - Rhinitis [Unknown]
  - Dyspnoea [Unknown]
  - Nasal dryness [Unknown]
  - Drug ineffective for unapproved indication [Unknown]
  - Suffocation feeling [Unknown]
  - Drug ineffective [Unknown]
